FAERS Safety Report 11244233 (Version 1)
Quarter: 2015Q3

REPORT INFORMATION
  Report Type: Spontaneous
  Country: US (occurrence: US)
  Receive Date: 20150707
  Receipt Date: 20150707
  Transmission Date: 20151125
  Serious: Yes (Hospitalization)
  Sender: FDA-Public Use
  Company Number: US-FRESENIUS KABI-FK201503136

PATIENT
  Age: 54 Year
  Sex: Female
  Weight: 52 kg

DRUGS (17)
  1. ERLOTINIB HCL [Suspect]
     Active Substance: ERLOTINIB HYDROCHLORIDE
     Route: 048
     Dates: start: 20150506
  2. PREDNISONE. [Concomitant]
     Active Substance: PREDNISONE
  3. PERCOCET [Concomitant]
     Active Substance: ACETAMINOPHEN\OXYCODONE HYDROCHLORIDE
  4. NEULASTA [Concomitant]
     Active Substance: PEGFILGRASTIM
  5. CISPLATIN (MANUFACTURER UNKNOWN) [Suspect]
     Active Substance: CISPLATIN
     Indication: SQUAMOUS CELL CARCINOMA OF THE TONGUE
     Route: 065
  6. ERLOTINIB HCL [Suspect]
     Active Substance: ERLOTINIB HYDROCHLORIDE
     Indication: SQUAMOUS CELL CARCINOMA OF THE TONGUE
     Route: 048
     Dates: start: 20150413, end: 20150423
  7. SENOKOT [Concomitant]
     Active Substance: SENNOSIDES
  8. OMNICEF [Concomitant]
     Active Substance: CEFDINIR
  9. ZITHROMAX [Concomitant]
     Active Substance: AZITHROMYCIN DIHYDRATE
  10. XANAX [Concomitant]
     Active Substance: ALPRAZOLAM
  11. HYPROMELLOSE [Concomitant]
     Active Substance: HYPROMELLOSES
  12. LISINOPRIL. [Concomitant]
     Active Substance: LISINOPRIL
  13. LOMOTIL [Concomitant]
     Active Substance: ATROPINE SULFATE\DIPHENOXYLATE HYDROCHLORIDE
  14. DOCETAXEL. [Suspect]
     Active Substance: DOCETAXEL
     Indication: SQUAMOUS CELL CARCINOMA OF THE TONGUE
     Route: 065
  15. COREG [Concomitant]
     Active Substance: CARVEDILOL
  16. IMODIUM [Concomitant]
     Active Substance: LOPERAMIDE HYDROCHLORIDE
  17. HYDROCORTISONE. [Concomitant]
     Active Substance: HYDROCORTISONE

REACTIONS (1)
  - Diarrhoea [Recovered/Resolved]

NARRATIVE: CASE EVENT DATE: 20150514
